FAERS Safety Report 8162592-9 (Version None)
Quarter: 2012Q1

REPORT INFORMATION
  Report Type: 
  Country: None (occurrence: None)
  Receive Date: 20120221
  Receipt Date: 20120206
  Transmission Date: 20120608
  Serious: Yes (Death)
  Sender: FDA-Public Use
  Company Number: UTC-015312

PATIENT
  Age: 71 Year
  Sex: Female
  Weight: 62.7 kg

DRUGS (4)
  1. ADCIRCA [Concomitant]
  2. COUMADIN [Concomitant]
  3. TYVASO [Suspect]
     Indication: COR PULMONALE CHRONIC
     Dosage: 18-54 MICROGRAM, INHALATION
     Route: 055
     Dates: start: 20111026
  4. TRACLEER [Concomitant]

REACTIONS (1)
  - DEATH [None]
